FAERS Safety Report 25655690 (Version 2)
Quarter: 2025Q3

REPORT INFORMATION
  Report Type: Spontaneous
  Country: CN (occurrence: CN)
  Receive Date: 20250807
  Receipt Date: 20250812
  Transmission Date: 20251021
  Serious: Yes (Hospitalization)
  Sender: ROCHE
  Company Number: CN-BoehringerIngelheim-2025-BI-086452

PATIENT
  Age: 70 Year
  Sex: Male
  Weight: 60 kg

DRUGS (2)
  1. ALTEPLASE [Suspect]
     Active Substance: ALTEPLASE
     Indication: Cerebral artery occlusion
     Dosage: 4MG WAS GIVEN INTRAVENOUS BOLUS.?TOTAL DOSE: 36MG
     Route: 042
     Dates: start: 20250714, end: 20250714
  2. ALTEPLASE [Suspect]
     Active Substance: ALTEPLASE
     Dosage: THE REMAINING 32 MG WAS PUMPED FOR 1 HOUR.?TOTAL DOSE: 36MG
     Route: 042
     Dates: end: 20250714

REACTIONS (6)
  - Hallucination [Recovering/Resolving]
  - Visual impairment [Recovering/Resolving]
  - Mental disorder [Recovering/Resolving]
  - Abnormal behaviour [Recovering/Resolving]
  - Cerebral haematoma [Recovering/Resolving]
  - Hallucination, visual [Recovering/Resolving]

NARRATIVE: CASE EVENT DATE: 20250714
